FAERS Safety Report 6519309-0 (Version None)
Quarter: 2009Q4

REPORT INFORMATION
  Report Type: 
  Country: None (occurrence: None)
  Receive Date: 20091224
  Receipt Date: 20091224
  Transmission Date: 20100525
  Serious: No
  Sender: FDA-Public Use
  Company Number: None

PATIENT
  Sex: Male
  Weight: 42.4 kg

DRUGS (9)
  1. CARBOPLATIN [Suspect]
     Dosage: 75 MG
  2. ISOTRETINOIN (13-CIS-RETINOIC ACID, ACCUTANE) [Suspect]
     Dosage: 966 MG
  3. VINCRISTINE SULFATE [Suspect]
     Dosage: 4 MG
  4. BACTRIM [Concomitant]
  5. LANTUS [Concomitant]
  6. MAGNESIUM [Concomitant]
  7. NOVOLOG [Concomitant]
  8. PREVACID [Concomitant]
  9. ZOFRAN [Concomitant]

REACTIONS (8)
  - DRY EYE [None]
  - HYPERCALCAEMIA [None]
  - MACULAR OEDEMA [None]
  - RETINAL EXUDATES [None]
  - RETINAL HAEMORRHAGE [None]
  - RETINAL VEIN OCCLUSION [None]
  - VENOUS STASIS RETINOPATHY [None]
  - VISION BLURRED [None]
